FAERS Safety Report 8936140 (Version 3)
Quarter: 2013Q4

REPORT INFORMATION
  Report Type: Spontaneous
  Country: US (occurrence: None)
  Receive Date: 20121121
  Receipt Date: 20131212
  Transmission Date: 20140711
  Serious: Yes (Hospitalization)
  Sender: FDA-Public Use
  Company Number: JPI-P-026290

PATIENT
  Age: 16 Year
  Sex: Female
  Weight: 43.55 kg

DRUGS (17)
  1. XYREM (500 MILLIGRAM/ MILLILITERS, SOLUTION) (SODIUM OXYBATE) [Suspect]
     Indication: NARCOLEPSY
     Dosage: (UNKNOWN), ORAL
     Route: 048
  2. ONDANSETRON HYDROCHLORIDE [Concomitant]
  3. PROMETHAZINE HYDROCHLORIDE [Concomitant]
  4. CYCLOBENZAPRINE HYDROCHLORIDE [Concomitant]
  5. METOCLOPRAMIDE HYDROCHLORIDE [Concomitant]
  6. LEVOCARNITINE [Concomitant]
  7. FLUDROCORTISONE [Concomitant]
  8. ACETAZOLAMIDE [Concomitant]
  9. LUBIPROSTONE [Concomitant]
  10. LANSOPRAZOLE [Concomitant]
  11. ARMODAFINIL [Concomitant]
  12. METHYLPHENIDATE [Concomitant]
  13. LEVOTHYROXINE SODIUM [Concomitant]
  14. MIDORINE HYDROCHLORIDE [Concomitant]
  15. PROPRANOLOL [Concomitant]
  16. ZONISAMIDE [Concomitant]
  17. POTASSIUM [Concomitant]

REACTIONS (13)
  - Viral infection [None]
  - Lymphadenopathy [None]
  - Face oedema [None]
  - Weight decreased [None]
  - Nausea [None]
  - Acidosis [None]
  - Insomnia [None]
  - Constipation [None]
  - Metabolic acidosis [None]
  - Ammonia increased [None]
  - Carbon dioxide increased [None]
  - Oedema peripheral [None]
  - Weight decreased [None]
